FAERS Safety Report 4735387-3 (Version None)
Quarter: 2005Q3

REPORT INFORMATION
  Report Type: 
  Country: None (occurrence: None)
  Receive Date: 20050805
  Receipt Date: 20050726
  Transmission Date: 20060218
  Serious: Yes (Other)
  Sender: FDA-Public Use
  Company Number: US-AMGEN-PRA144080

PATIENT
  Sex: Female

DRUGS (9)
  1. DARBEPOETIN ALFA [Suspect]
     Indication: MYELODYSPLASTIC SYNDROME
     Route: 058
     Dates: start: 20041115, end: 20050706
  2. TYLENOL (CAPLET) [Concomitant]
  3. DITROPAN [Concomitant]
  4. ZINC [Concomitant]
  5. CALCIUM GLUCONATE [Concomitant]
  6. ONE-A-DAY [Concomitant]
  7. DARVOCET-N 100 [Concomitant]
  8. REMERON [Concomitant]
  9. PROVIGIL [Concomitant]

REACTIONS (8)
  - ARRHYTHMIA [None]
  - COLD SWEAT [None]
  - CONVULSION [None]
  - DEPRESSED LEVEL OF CONSCIOUSNESS [None]
  - FALL [None]
  - HUMERUS FRACTURE [None]
  - SYNCOPE VASOVAGAL [None]
  - TRANSIENT ISCHAEMIC ATTACK [None]
